FAERS Safety Report 9720721 (Version 3)
Quarter: 2013Q4

REPORT INFORMATION
  Report Type: Spontaneous
  Country: FR (occurrence: FR)
  Receive Date: 20131129
  Receipt Date: 20131205
  Transmission Date: 20140711
  Serious: Yes (Death, Other)
  Sender: FDA-Public Use
  Company Number: FR-PFIZER INC-2013340207

PATIENT
  Age: 58 Year
  Sex: Male

DRUGS (4)
  1. ARGANOVA [Suspect]
     Indication: HEPARIN-INDUCED THROMBOCYTOPENIA
     Dosage: 25 MG, SINGLE BOLUS
     Route: 051
     Dates: start: 20131020, end: 20131021
  2. ARGANOVA [Suspect]
     Dosage: 1.8 MG/HR
     Route: 051
     Dates: start: 20131020, end: 20131021
  3. ORGARAN [Suspect]
     Indication: HEPARIN-INDUCED THROMBOCYTOPENIA
     Dosage: 100 IU, UNK
     Dates: start: 20131011, end: 20131020
  4. HEPARIN [Concomitant]
     Dosage: 100 IU, UNK
     Dates: end: 20131011

REACTIONS (3)
  - Haemorrhage [Fatal]
  - Shock haemorrhagic [Fatal]
  - Disseminated intravascular coagulation [Fatal]
